FAERS Safety Report 5488740-7 (Version None)
Quarter: 2007Q4

REPORT INFORMATION
  Report Type: 
  Country: None (occurrence: None)
  Receive Date: 20071017
  Receipt Date: 20071005
  Transmission Date: 20080405
  Serious: Yes (Other)
  Sender: FDA-Public Use
  Company Number: US-PFIZER INC-2007069618

PATIENT
  Sex: Male
  Weight: 72.1 kg

DRUGS (4)
  1. LYRICA [Suspect]
     Indication: NEURODERMATITIS
     Route: 048
  2. LYRICA [Suspect]
     Indication: NERVOUS SYSTEM DISORDER
  3. LYRICA [Suspect]
     Indication: PAIN
  4. ALL OTHER NON-THERAPEUTIC PRODUCTS [Suspect]

REACTIONS (9)
  - ABDOMINAL PAIN UPPER [None]
  - DIZZINESS [None]
  - DYSPNOEA [None]
  - FOOD INTERACTION [None]
  - INFLUENZA LIKE ILLNESS [None]
  - MEMORY IMPAIRMENT [None]
  - NAUSEA [None]
  - PARAESTHESIA [None]
  - WEIGHT INCREASED [None]
